FAERS Safety Report 13774210 (Version 2)
Quarter: 2017Q3

REPORT INFORMATION
  Report Type: Spontaneous
  Country: US (occurrence: US)
  Receive Date: 20170721
  Receipt Date: 20170822
  Transmission Date: 20171127
  Serious: Yes (Hospitalization, Other)
  Sender: FDA-Public Use
  Company Number: US-ASTELLAS-2017US028411

PATIENT
  Age: 18 Year
  Sex: Female

DRUGS (1)
  1. PROGRAF [Suspect]
     Active Substance: TACROLIMUS\TACROLIMUS ANHYDROUS
     Indication: LIVER TRANSPLANT
     Dosage: 5 MG, ONCE DAILY (1 MILLIGRAM TABLETS/ THREE CAPS IN AM AND 2 CAPS IN THE PM)
     Route: 048
     Dates: start: 20160802

REACTIONS (2)
  - Appendicitis perforated [Recovered/Resolved]
  - Small intestinal resection [Recovered/Resolved]

NARRATIVE: CASE EVENT DATE: 201706
